FAERS Safety Report 6383267-2 (Version None)
Quarter: 2009Q3

REPORT INFORMATION
  Report Type: 
  Country: None (occurrence: None)
  Receive Date: 20090929
  Receipt Date: 20090920
  Transmission Date: 20100115
  Serious: Yes (Other)
  Sender: FDA-Public Use
  Company Number: 2009SP026806

PATIENT
  Age: 12 Year
  Sex: Female
  Weight: 63.5036 kg

DRUGS (1)
  1. CLARITIN [Suspect]
     Indication: SUICIDE ATTEMPT
     Dosage: 50 MG; PO
     Route: 048
     Dates: start: 20090920, end: 20090920

REACTIONS (2)
  - INTENTIONAL OVERDOSE [None]
  - SUICIDE ATTEMPT [None]
